FAERS Safety Report 6535179-9 (Version None)
Quarter: 2010Q1

REPORT INFORMATION
  Report Type: 
  Country: None (occurrence: None)
  Receive Date: 20100113
  Receipt Date: 20100104
  Transmission Date: 20100710
  Serious: Yes (Other)
  Sender: FDA-Public Use
  Company Number: US-ASTRAZENECA-2010SE00157

PATIENT
  Age: 40 Year
  Sex: Female
  Weight: 113.4 kg

DRUGS (5)
  1. SEROQUEL [Suspect]
     Route: 048
     Dates: start: 20090801
  2. SEROQUEL [Suspect]
     Route: 048
     Dates: start: 20100101
  3. SEROQUEL [Suspect]
     Route: 048
     Dates: start: 20100102
  4. SEROQUEL [Suspect]
     Route: 048
     Dates: start: 20100103
  5. WELLBUTRIN [Concomitant]
     Dates: start: 20080101

REACTIONS (6)
  - DRY MOUTH [None]
  - FEELING HOT [None]
  - FLUSHING [None]
  - LOSS OF CONSCIOUSNESS [None]
  - PALPITATIONS [None]
  - VOMITING [None]
